FAERS Safety Report 8494945-3 (Version None)
Quarter: 2012Q3

REPORT INFORMATION
  Report Type: 
  Country: None (occurrence: None)
  Receive Date: 20120709
  Receipt Date: 20120627
  Transmission Date: 20120928
  Serious: Yes (Death, Hospitalization, Other)
  Sender: FDA-Public Use
  Company Number: AU-BRISTOL-MYERS SQUIBB COMPANY-16248437

PATIENT
  Age: 72 Year
  Sex: Male
  Weight: 77 kg

DRUGS (5)
  1. PERINDOPRIL ERBUMINE [Concomitant]
  2. YERVOY [Suspect]
     Dosage: IPILIMUMAB 3MG/KG
     Dates: end: 20111024
  3. ATORVASTATIN [Concomitant]
  4. LITHIUM CARBONATE [Concomitant]
  5. GLICLAZIDE [Concomitant]

REACTIONS (9)
  - HYPOPHYSITIS [None]
  - NAUSEA [None]
  - RASH ERYTHEMATOUS [None]
  - RESPIRATORY FAILURE [None]
  - FATIGUE [None]
  - PNEUMONIA [None]
  - RENAL FAILURE [None]
  - DIABETES INSIPIDUS [None]
  - ARTHRALGIA [None]
